FAERS Safety Report 10053329 (Version 3)
Quarter: 2014Q3

REPORT INFORMATION
  Report Type: Report from Study
  Country: MX (occurrence: MX)
  Receive Date: 20140402
  Receipt Date: 20140707
  Transmission Date: 20150326
  Serious: No
  Sender: FDA-Public Use
  Company Number: PHHY2014MX038742

PATIENT
  Age: 76 Year
  Sex: Female

DRUGS (6)
  1. CO-DIOVAN [Suspect]
     Active Substance: HYDROCHLOROTHIAZIDE\VALSARTAN
     Indication: HYPERTENSION
     Dosage: 1 TABLET (160/12.5 MG), DAILY
     Route: 048
     Dates: end: 201303
  2. EUTEBROL [Concomitant]
     Indication: DEMENTIA ALZHEIMER^S TYPE
     Dosage: 1 UKN, DAILY
     Dates: start: 201303
  3. SERMION [Concomitant]
     Active Substance: NICERGOLINE
     Indication: DEMENTIA ALZHEIMER^S TYPE
     Dosage: 1 UKN, DAILY
     Dates: start: 201403
  4. CO-DIOVAN [Suspect]
     Active Substance: HYDROCHLOROTHIAZIDE\VALSARTAN
     Dosage: 320/12.5 MG, DAILY
     Route: 048
     Dates: start: 201303
  5. FICONAX [Concomitant]
     Indication: DIABETES MELLITUS
     Dosage: 1 UKN, DAILY
     Dates: start: 201311
  6. DIMEFOR [Concomitant]
     Indication: DIABETES MELLITUS
     Dosage: 2 UKN, DAILY

REACTIONS (1)
  - Blood pressure increased [Recovered/Resolved]
